FAERS Safety Report 7261455-0 (Version None)
Quarter: 2011Q1

REPORT INFORMATION
  Report Type: 
  Country: None (occurrence: None)
  Receive Date: 20110130
  Receipt Date: 20100930
  Transmission Date: 20110831
  Serious: No
  Sender: FDA-Public Use
  Company Number: US-ABBOTT-10P-163-0675021-00

PATIENT
  Age: 65 Year
  Sex: Female

DRUGS (6)
  1. HUMIRA [Suspect]
     Indication: RHEUMATOID ARTHRITIS
     Dates: start: 20100831, end: 20100916
  2. ATENOLOL [Concomitant]
     Indication: BLOOD PRESSURE
  3. ARAVA [Concomitant]
     Indication: ARTHRITIS
  4. NEXIUM [Concomitant]
     Indication: GASTRIC DISORDER
  5. AMITRIPTYLINE HCL [Concomitant]
     Indication: DEPRESSION
  6. AMITRIPTYLINE HCL [Concomitant]
     Indication: PAIN

REACTIONS (2)
  - BLISTER [None]
  - INFECTION [None]
